FAERS Safety Report 15746269 (Version 2)
Quarter: 2018Q4

REPORT INFORMATION
  Report Type: Report from Study
  Country: US (occurrence: US)
  Receive Date: 20181220
  Receipt Date: 20181227
  Transmission Date: 20190205
  Serious: Yes (Hospitalization)
  Sender: FDA-Public Use
  Company Number: US-SHIRE-US201848455

PATIENT
  Sex: Female

DRUGS (4)
  1. KALBITOR [Suspect]
     Active Substance: ECALLANTIDE
     Indication: PRODUCT USED FOR UNKNOWN INDICATION
     Dosage: 30 MG, AS REQ^D
     Route: 058
     Dates: start: 20130108
  2. CINRYZE [Suspect]
     Active Substance: HUMAN C1-ESTERASE INHIBITOR
     Dosage: UNK, OTHER EVERY 3 DAYS
     Route: 042
     Dates: start: 20131008
  3. FIRAZYR [Suspect]
     Active Substance: ICATIBANT ACETATE
     Indication: PRODUCT USED FOR UNKNOWN INDICATION
     Dosage: 3ML/30MG AS REQ^D
     Route: 058
     Dates: start: 20130701
  4. CINRYZE [Suspect]
     Active Substance: HUMAN C1-ESTERASE INHIBITOR
     Indication: IMMUNE SYSTEM DISORDER
     Dosage: 1500 IU, 2X A WEEK
     Route: 042
     Dates: start: 20130701

REACTIONS (2)
  - Prescribed overdose [Unknown]
  - Heart rate increased [Unknown]
